FAERS Safety Report 24557846 (Version 1)
Quarter: 2024Q4

REPORT INFORMATION
  Report Type: Spontaneous
  Country: CN (occurrence: CN)
  Receive Date: 20241028
  Receipt Date: 20241028
  Transmission Date: 20250115
  Serious: Yes (Hospitalization)
  Sender: EISAI
  Company Number: CN-Eisai-EC-2024-177469

PATIENT
  Age: 64 Year
  Sex: Male
  Weight: 57 kg

DRUGS (2)
  1. LENVATINIB [Suspect]
     Active Substance: LENVATINIB
     Indication: Hepatic cancer
     Route: 048
     Dates: start: 20240908, end: 20241015
  2. SINTILIMAB [Concomitant]
     Active Substance: SINTILIMAB
     Indication: Hepatic cancer
     Dates: start: 20240908, end: 20241013

REACTIONS (4)
  - Blood bilirubin increased [Unknown]
  - Platelet count decreased [Unknown]
  - Asthenia [Recovering/Resolving]
  - Decreased appetite [Recovering/Resolving]

NARRATIVE: CASE EVENT DATE: 20241015
